FAERS Safety Report 8017769 (Version 3)
Quarter: 2013Q1

REPORT INFORMATION
  Report Type: Report from Study
  Country: US (occurrence: US)
  Receive Date: 20110630
  Receipt Date: 20130312
  Transmission Date: 20140127
  Serious: Yes (Other)
  Sender: FDA-Public Use
  Company Number: US-ABBOTT-11P-163-0734712-00

PATIENT
  Age: 71 None
  Sex: Female
  Weight: 65.83 kg

DRUGS (10)
  1. HUMIRA 40 MG/0.8 ML PEN [Suspect]
     Indication: PSORIATIC ARTHROPATHY
     Route: 058
     Dates: end: 2008
  2. HUMIRA 40 MG/0.8 ML PEN [Suspect]
     Route: 058
     Dates: start: 2008, end: 200912
  3. HUMIRA 40 MG/0.8 ML PEN [Suspect]
     Route: 058
     Dates: start: 201101
  4. LEVOTHYROXINE [Suspect]
     Indication: HYPOTHYROIDISM
     Route: 048
  5. LEVOTHYROXINE [Suspect]
     Dosage: 1 1/2 TABLET
  6. WOMEN^S VITAMIN [Concomitant]
     Indication: CARDIAC DISORDER
     Route: 048
  7. COQ10 [Concomitant]
     Indication: SUPPLEMENTATION THERAPY
     Route: 048
  8. GLUCOSAMINE SULFATE [Concomitant]
     Indication: PSORIATIC ARTHROPATHY
     Route: 048
  9. ETIRACETAM [Concomitant]
     Indication: CONVULSION
  10. METHOTREXATE [Concomitant]
     Indication: RHEUMATOID ARTHRITIS
     Route: 048
     Dates: start: 201111

REACTIONS (18)
  - Convulsion [Recovered/Resolved]
  - Cerebrovascular accident [Recovered/Resolved]
  - Convulsion [Recovered/Resolved]
  - Drug ineffective [Not Recovered/Not Resolved]
  - Localised infection [Recovered/Resolved]
  - Memory impairment [Not Recovered/Not Resolved]
  - Arthritis [Not Recovered/Not Resolved]
  - Psoriasis [Not Recovered/Not Resolved]
  - Drug ineffective [Not Recovered/Not Resolved]
  - Arthralgia [Not Recovered/Not Resolved]
  - Pain in extremity [Not Recovered/Not Resolved]
  - Pain in extremity [Not Recovered/Not Resolved]
  - Pain in extremity [Not Recovered/Not Resolved]
  - Arthralgia [Not Recovered/Not Resolved]
  - Local swelling [Not Recovered/Not Resolved]
  - Injection site pain [Unknown]
  - Dizziness [Recovered/Resolved]
  - Injection site bruising [Recovered/Resolved]
